FAERS Safety Report 16647082 (Version 2)
Quarter: 2019Q3

REPORT INFORMATION
  Report Type: Spontaneous
  Country: US (occurrence: US)
  Receive Date: 20190730
  Receipt Date: 20190903
  Transmission Date: 20191004
  Serious: No
  Sender: FDA-Public Use
  Company Number: US-VERTEX PHARMACEUTICALS-2019-007032

PATIENT
  Age: 43 Year
  Sex: Male

DRUGS (19)
  1. FLUCONAZOLE. [Concomitant]
     Active Substance: FLUCONAZOLE
  2. CIPROFLOXACIN. [Concomitant]
     Active Substance: CIPROFLOXACIN
  3. MORPHINE [Concomitant]
     Active Substance: MORPHINE
  4. PANTOPRAZOLE [Concomitant]
     Active Substance: PANTOPRAZOLE
  5. BACTRIM [Concomitant]
     Active Substance: SULFAMETHOXAZOLE\TRIMETHOPRIM
  6. CAYSTON [Concomitant]
     Active Substance: AZTREONAM
  7. TAMSULOSIN [Concomitant]
     Active Substance: TAMSULOSIN
  8. ALTERRA [Concomitant]
  9. TOBRAMYCIN. [Concomitant]
     Active Substance: TOBRAMYCIN
  10. SMZ-TMP [Concomitant]
     Active Substance: SULFAMETHOXAZOLE\TRIMETHOPRIM
  11. SYMDEKO [Suspect]
     Active Substance: IVACAFTOR\TEZACAFTOR
     Indication: CYSTIC FIBROSIS
     Dosage: TEZACAFTOR 100 MG, IVACAFTOR 150 MG QAM ; IVACAFTOR 150 MG QPM
     Route: 048
     Dates: start: 20180711, end: 20190715
  12. ZOLPIDEM [Concomitant]
     Active Substance: ZOLPIDEM TARTRATE
  13. PRAZOSIN. [Concomitant]
     Active Substance: PRAZOSIN
  14. CLONAZEPAM. [Concomitant]
     Active Substance: CLONAZEPAM
  15. MIRTAZAPINE. [Concomitant]
     Active Substance: MIRTAZAPINE
  16. PULMOZYME [Concomitant]
     Active Substance: DORNASE ALFA
  17. HYDROMORPHONE [Concomitant]
     Active Substance: HYDROMORPHONE
  18. MAGNESIUM OXIDE. [Concomitant]
     Active Substance: MAGNESIUM OXIDE
  19. OXYBUTYNIN. [Concomitant]
     Active Substance: OXYBUTYNIN CHLORIDE

REACTIONS (1)
  - Liver disorder [Unknown]

NARRATIVE: CASE EVENT DATE: 20190707
